APPROVED DRUG PRODUCT: CEFUROXIME AXETIL
Active Ingredient: CEFUROXIME AXETIL
Strength: EQ 500MG BASE
Dosage Form/Route: TABLET;ORAL
Application: A065135 | Product #002
Applicant: LUPIN LTD
Approved: Jul 25, 2003 | RLD: No | RS: No | Type: DISCN